FAERS Safety Report 7699517-6 (Version None)
Quarter: 2011Q3

REPORT INFORMATION
  Report Type: 
  Country: None (occurrence: None)
  Receive Date: 20110820
  Receipt Date: 20110630
  Transmission Date: 20111222
  Serious: No
  Sender: FDA-Public Use
  Company Number: US-ALLERGAN-1108934US

PATIENT
  Age: 61 Year
  Sex: Female

DRUGS (5)
  1. PEPCID [Concomitant]
     Indication: PRODUCT USED FOR UNKNOWN INDICATION
     Dosage: UNK
  2. ASPIRIN [Concomitant]
     Indication: HEADACHE
     Dosage: UNK
  3. DONNATAL [Concomitant]
     Indication: IRRITABLE BOWEL SYNDROME
     Dosage: UNK
  4. SANCTURA XR [Suspect]
     Indication: BLADDER SPASM
     Dosage: 1 DF, QD
     Route: 048
  5. SEROQUEL [Concomitant]
     Indication: DEPRESSION

REACTIONS (5)
  - VAGINITIS BACTERIAL [None]
  - FUNGAL INFECTION [None]
  - RASH [None]
  - NAUSEA [None]
  - URINE ODOUR ABNORMAL [None]
